FAERS Safety Report 8607534-4 (Version None)
Quarter: 2012Q3

REPORT INFORMATION
  Report Type: 
  Country: None (occurrence: None)
  Receive Date: 20120821
  Receipt Date: 20120814
  Transmission Date: 20120928
  Serious: Yes (Other)
  Sender: FDA-Public Use
  Company Number: GB-JNJFOC-20120807179

PATIENT

DRUGS (5)
  1. RIFAMPICIN [Interacting]
     Indication: PRODUCT USED FOR UNKNOWN INDICATION
     Route: 065
  2. ACETAMINOPHEN [Suspect]
     Route: 065
  3. ACETAMINOPHEN [Suspect]
     Indication: PRODUCT USED FOR UNKNOWN INDICATION
     Route: 065
  4. CARBAMAZEPINE [Interacting]
     Indication: PRODUCT USED FOR UNKNOWN INDICATION
     Route: 065
  5. PHENYTOIN [Interacting]
     Indication: PRODUCT USED FOR UNKNOWN INDICATION
     Route: 065

REACTIONS (3)
  - TOXICITY TO VARIOUS AGENTS [None]
  - OVERDOSE [None]
  - DRUG INTERACTION [None]
